FAERS Safety Report 10722387 (Version 1)
Quarter: 2015Q1

REPORT INFORMATION
  Report Type: Spontaneous
  Country: CA (occurrence: CA)
  Receive Date: 20150119
  Receipt Date: 20150119
  Transmission Date: 20150721
  Serious: Yes (Death, Life-Threatening, Hospitalization, Other)
  Sender: FDA-Public Use
  Company Number: CA-B.I. PHARMACEUTICALS,INC./RIDGEFIELD-2015-BI-02508CN

PATIENT
  Age: 94 Year
  Sex: Female

DRUGS (1)
  1. PRADAXA [Suspect]
     Active Substance: DABIGATRAN ETEXILATE MESYLATE
     Indication: ATRIAL FIBRILLATION
     Dosage: 220 MG
     Route: 048

REACTIONS (7)
  - Anion gap increased [Fatal]
  - Hypotension [Fatal]
  - Blood bicarbonate decreased [Fatal]
  - Urine output decreased [Fatal]
  - Blood lactic acid increased [Fatal]
  - Metabolic acidosis [Fatal]
  - Shock [Fatal]
